FAERS Safety Report 8242116-8 (Version None)
Quarter: 2012Q1

REPORT INFORMATION
  Report Type: 
  Country: None (occurrence: None)
  Receive Date: 20120314
  Receipt Date: 20100603
  Transmission Date: 20120608
  Serious: No
  Sender: FDA-Public Use
  Company Number: PHHY2010US36396

PATIENT
  Age: 24 Year
  Sex: Male

DRUGS (1)
  1. FANAPT [Suspect]
     Indication: SCHIZOPHRENIA
     Dosage: 1 MG, BID, ORAL; 2 MG, BID, ORAL; 4 MG, BID, ORAL 6 MG, BID, ORAL
     Route: 048
     Dates: start: 20100225

REACTIONS (2)
  - SEXUAL DYSFUNCTION [None]
  - EJACULATION FAILURE [None]
